FAERS Safety Report 16811117 (Version 4)
Quarter: 2019Q3

REPORT INFORMATION
  Report Type: Spontaneous
  Country: GB (occurrence: GB)
  Receive Date: 20190916
  Receipt Date: 20190923
  Transmission Date: 20191005
  Serious: Yes (Other)
  Sender: FDA-Public Use
  Company Number: PHHY2019GB212074

PATIENT
  Age: 65 Year
  Sex: Female

DRUGS (4)
  1. PREDNISOLONE. [Suspect]
     Active Substance: PREDNISOLONE
     Indication: CUTANEOUS LUPUS ERYTHEMATOSUS
     Dosage: 7.5 MG, UNK
     Route: 048
  2. CYCLOPHOSPHAMIDE. [Suspect]
     Active Substance: CYCLOPHOSPHAMIDE
     Indication: CUTANEOUS LUPUS ERYTHEMATOSUS
     Dosage: 750 MG, UNK
     Route: 042
  3. METHYLPREDNISOLONE. [Suspect]
     Active Substance: METHYLPREDNISOLONE
     Indication: CUTANEOUS LUPUS ERYTHEMATOSUS
     Dosage: 100 MG, UNK
     Route: 042
     Dates: start: 201003
  4. RITUXIMAB. [Suspect]
     Active Substance: RITUXIMAB
     Indication: CUTANEOUS LUPUS ERYTHEMATOSUS
     Dosage: 1 G, UNK
     Route: 042
     Dates: start: 201003

REACTIONS (3)
  - Intentional product use issue [Unknown]
  - Lower respiratory tract infection [Unknown]
  - Off label use [Unknown]
